FAERS Safety Report 20693315 (Version 1)
Quarter: 2022Q2

REPORT INFORMATION
  Report Type: Spontaneous
  Country: FR (occurrence: FR)
  Receive Date: 20220410
  Receipt Date: 20220410
  Transmission Date: 20220721
  Serious: Yes (Life-Threatening)
  Sender: FDA-Public Use
  Company Number: None

PATIENT
  Age: 39 Year
  Sex: Male

DRUGS (2)
  1. METHYLPHENIDATE HYDROCHLORIDE [Suspect]
     Active Substance: METHYLPHENIDATE HYDROCHLORIDE
     Indication: Drug abuse
     Dosage: 400 MG, QD
     Route: 042
  2. SKENAN [Suspect]
     Active Substance: MORPHINE SULFATE
     Indication: Drug abuse
     Dosage: 200 MG, QD
     Route: 042

REACTIONS (3)
  - Serotonin syndrome [Recovered/Resolved]
  - Drug abuse [Recovered/Resolved]
  - Seizure [Recovered/Resolved]

NARRATIVE: CASE EVENT DATE: 20220224
